FAERS Safety Report 22043798 (Version 1)
Quarter: 2023Q1

REPORT INFORMATION
  Report Type: Spontaneous
  Country: US (occurrence: US)
  Receive Date: 20230228
  Receipt Date: 20230228
  Transmission Date: 20230417
  Serious: No
  Sender: FDA-Public Use
  Company Number: US-SA-SAC20230227001148

PATIENT
  Sex: Female

DRUGS (1)
  1. DUPIXENT [Suspect]
     Active Substance: DUPILUMAB
     Dosage: 300 MG, FREQUENCY:OTHER
     Route: 058

REACTIONS (7)
  - Injection site pain [Unknown]
  - Visual impairment [Unknown]
  - Disorientation [Unknown]
  - Injection site urticaria [Unknown]
  - Dizziness [Unknown]
  - Injection site erythema [Unknown]
  - Expired product administered [Unknown]
